FAERS Safety Report 8418422-0 (Version None)
Quarter: 2012Q2

REPORT INFORMATION
  Report Type: 
  Country: None (occurrence: None)
  Receive Date: 20120607
  Receipt Date: 20120604
  Transmission Date: 20120825
  Serious: Yes (Other)
  Sender: FDA-Public Use
  Company Number: BR-PFIZER INC-2012090449

PATIENT
  Age: 48 Year
  Sex: Male
  Weight: 75 kg

DRUGS (5)
  1. ZOLOFT [Suspect]
     Indication: ANXIETY
     Dosage: 50 MG, 1X/DAY (IN THE EVENING)
     Route: 048
     Dates: start: 20010914
  2. ZOLOFT [Suspect]
     Dosage: 50 MG, 2X/DAY (IN THE MORNING AND IN THE AFTERNOON)
     Route: 048
  3. LITHIUM CARBONATE [Concomitant]
     Dosage: 150 MG (HALF TABLET OF 300MG), DAILY
  4. PAROXETINE [Suspect]
     Dosage: UNK
  5. ALPRAZOLAM [Concomitant]
     Indication: ANXIETY
     Dosage: 1 TABLET PER DAY
     Dates: start: 20110101

REACTIONS (6)
  - SMALL INTESTINE OPERATION [None]
  - DRUG INEFFECTIVE [None]
  - GENERALISED ANXIETY DISORDER [None]
  - DEPRESSION [None]
  - DIABETES MELLITUS [None]
  - ANXIETY [None]
